FAERS Safety Report 5317204-6 (Version None)
Quarter: 2007Q2

REPORT INFORMATION
  Report Type: 
  Country: None (occurrence: None)
  Receive Date: 20070504
  Receipt Date: 20070402
  Transmission Date: 20071010
  Serious: Yes (Other)
  Sender: FDA-Public Use
  Company Number: US-PFIZER INC-2007027339

PATIENT
  Sex: Male
  Weight: 68 kg

DRUGS (5)
  1. LIPITOR [Suspect]
     Indication: BLOOD CHOLESTEROL INCREASED
  2. CHANTIX [Suspect]
     Indication: SMOKING CESSATION THERAPY
  3. COREG [Suspect]
  4. ZESTRIL [Suspect]
     Indication: BLOOD PRESSURE
  5. PLAVIX [Concomitant]

REACTIONS (8)
  - CARDIAC DISORDER [None]
  - CAROTID ARTERY OCCLUSION [None]
  - DIARRHOEA [None]
  - FEELING COLD [None]
  - FLATULENCE [None]
  - HEART RATE DECREASED [None]
  - HYPERTENSION [None]
  - NAUSEA [None]
